FAERS Safety Report 5020977-3 (Version None)
Quarter: 2006Q2

REPORT INFORMATION
  Report Type: 
  Country: None (occurrence: None)
  Receive Date: 20060606
  Receipt Date: 20060606
  Transmission Date: 20061013
  Serious: Yes (Life-Threatening, Disabling, Other)
  Sender: FDA-Public Use
  Company Number: None

PATIENT
  Age: 26 Year
  Sex: Female
  Weight: 52.1637 kg

DRUGS (2)
  1. LEVAQUIN [Suspect]
     Indication: COUGH
     Dosage: 750 MG     1X DAILY  10 DAYS   PO
     Route: 048
     Dates: start: 20060101, end: 20060110
  2. LEVAQUIN [Suspect]
     Indication: SINUSITIS
     Dosage: 750 MG     1X DAILY  10 DAYS   PO
     Route: 048
     Dates: start: 20060101, end: 20060110

REACTIONS (12)
  - ARTHROPATHY [None]
  - DECREASED ACTIVITY [None]
  - DIFFICULTY IN WALKING [None]
  - DRY MOUTH [None]
  - DYSPNOEA [None]
  - INSOMNIA [None]
  - MUSCLE SPASMS [None]
  - MUSCLE TIGHTNESS [None]
  - PAIN [None]
  - TENDON DISORDER [None]
  - VASODILATATION [None]
  - VEIN DISORDER [None]
